FAERS Safety Report 5715528-1 (Version None)
Quarter: 2008Q2

REPORT INFORMATION
  Report Type: 
  Country: None (occurrence: None)
  Receive Date: 20080422
  Receipt Date: 20080411
  Transmission Date: 20081010
  Serious: Yes (Hospitalization)
  Sender: FDA-Public Use
  Company Number: 2007BI017236

PATIENT
  Age: 47 Year
  Sex: Female

DRUGS (1)
  1. AVONEX [Suspect]
     Indication: MULTIPLE MYELOMA
     Dosage: 30 UG;QW;IM
     Route: 030
     Dates: start: 20040305, end: 20070930

REACTIONS (2)
  - ARTHRITIS BACTERIAL [None]
  - STAPHYLOCOCCAL INFECTION [None]
